FAERS Safety Report 8117779 (Version 3)
Quarter: 2015Q3

REPORT INFORMATION
  Report Type: Spontaneous
  Country: US (occurrence: US)
  Receive Date: 20110901
  Receipt Date: 20150805
  Transmission Date: 20151125
  Serious: Yes (Hospitalization)
  Sender: FDA-Public Use
  Company Number: US-BAYER-2011-079898

PATIENT
  Age: 34 Year
  Sex: Female

DRUGS (6)
  1. PERCOCET [Concomitant]
     Active Substance: ACETAMINOPHEN\OXYCODONE HYDROCHLORIDE
  2. MICROGESTIN [Concomitant]
     Active Substance: ETHINYL ESTRADIOL\NORETHINDRONE ACETATE
  3. MIRENA [Suspect]
     Active Substance: LEVONORGESTREL
     Indication: CONTRACEPTION
     Dosage: 20 MCG/24HR, CONT
     Route: 015
     Dates: start: 20111018
  4. DOXYCYCLINE. [Concomitant]
     Active Substance: DOXYCYCLINE
  5. MIRENA [Suspect]
     Active Substance: LEVONORGESTREL
     Indication: CONTRACEPTION
     Dosage: 20 MCG/24HR, CONT
     Route: 015
     Dates: start: 20101118, end: 20120815
  6. MIRENA [Suspect]
     Active Substance: LEVONORGESTREL
     Indication: CONTRACEPTION
     Dosage: 20 MCG/24HR, CONT
     Route: 015
     Dates: start: 200403, end: 200910

REACTIONS (15)
  - Amenorrhoea [Recovered/Resolved]
  - Device use error [None]
  - Genital haemorrhage [None]
  - Amenorrhoea [None]
  - Device dislocation [None]
  - Internal injury [None]
  - Depression [None]
  - Device expulsion [None]
  - Anxiety [None]
  - Pain [None]
  - Device issue [None]
  - Emotional distress [None]
  - Genital haemorrhage [None]
  - Uterine perforation [None]
  - Medical device discomfort [None]

NARRATIVE: CASE EVENT DATE: 201010
